FAERS Safety Report 19296401 (Version 1)
Quarter: 2021Q2

REPORT INFORMATION
  Report Type: Spontaneous
  Country: BR (occurrence: BR)
  Receive Date: 20210524
  Receipt Date: 20210524
  Transmission Date: 20210717
  Serious: Yes (Death)
  Sender: FDA-Public Use
  Company Number: BR-ROCHE-2833759

PATIENT
  Age: 11 Year
  Sex: Male

DRUGS (1)
  1. DIAZEPAM. [Suspect]
     Active Substance: DIAZEPAM
     Indication: INSOMNIA
     Route: 065

REACTIONS (4)
  - Homicide [Fatal]
  - Intentional product misuse [Unknown]
  - Off label use [Unknown]
  - Product administered to patient of inappropriate age [Unknown]
